FAERS Safety Report 9892179 (Version 1)
Quarter: 2014Q1

REPORT INFORMATION
  Report Type: Spontaneous
  Country: US (occurrence: US)
  Receive Date: 20140212
  Receipt Date: 20140212
  Transmission Date: 20141002
  Serious: No
  Sender: FDA-Public Use
  Company Number: US-TEVA-462589USA

PATIENT
  Sex: Male

DRUGS (1)
  1. PLAN B ONE-STEP [Suspect]
     Route: 063
     Dates: start: 20140201

REACTIONS (2)
  - Irritability [Not Recovered/Not Resolved]
  - Exposure during breast feeding [Unknown]
